FAERS Safety Report 7001181-6 (Version None)
Quarter: 2010Q3

REPORT INFORMATION
  Report Type: 
  Country: None (occurrence: None)
  Receive Date: 20100920
  Receipt Date: 20100304
  Transmission Date: 20110219
  Serious: Yes (Hospitalization)
  Sender: FDA-Public Use
  Company Number: US-ASTRAZENECA-2010SE30673

PATIENT
  Age: 20819 Day
  Sex: Female

DRUGS (6)
  1. SEROQUEL [Suspect]
     Route: 048
     Dates: start: 20050514
  2. EVISTA [Concomitant]
     Dates: start: 20050514
  3. LOPRESSOR [Concomitant]
     Dates: start: 20050514
  4. TOPAMAX [Concomitant]
     Dates: start: 20050514
  5. LISINOPRIL [Concomitant]
     Dates: start: 20050514
  6. LEVOXYL [Concomitant]
     Dates: start: 20050514

REACTIONS (4)
  - CONVULSION [None]
  - DIABETES MELLITUS [None]
  - INCONTINENCE [None]
  - MOUTH HAEMORRHAGE [None]
